FAERS Safety Report 16021559 (Version 2)
Quarter: 2019Q1

REPORT INFORMATION
  Report Type: Spontaneous
  Country: JP (occurrence: JP)
  Receive Date: 20190301
  Receipt Date: 20190307
  Transmission Date: 20190418
  Serious: Yes (Other)
  Sender: FDA-Public Use
  Company Number: JP-009507513-1902JPN012179

PATIENT
  Age: 53 Year
  Sex: Male

DRUGS (2)
  1. GLACTIV [Suspect]
     Active Substance: SITAGLIPTIN
     Indication: TYPE 1 DIABETES MELLITUS
     Dosage: UNK
     Route: 048
  2. IPRAGLIFLOZIN [Suspect]
     Active Substance: IPRAGLIFLOZIN
     Indication: TYPE 1 DIABETES MELLITUS
     Dosage: 50 MILLIGRAM, EVERYDAY
     Route: 065

REACTIONS (3)
  - Ketoacidosis [Recovering/Resolving]
  - Muscle atrophy [Unknown]
  - Off label use [Unknown]
